FAERS Safety Report 18600978 (Version 1)
Quarter: 2020Q4

REPORT INFORMATION
  Report Type: Spontaneous
  Country: JP (occurrence: JP)
  Receive Date: 20201210
  Receipt Date: 20201210
  Transmission Date: 20210114
  Serious: Yes (Other)
  Sender: FDA-Public Use
  Company Number: JP-PFIZER INC-2020481962

PATIENT
  Age: 59 Year
  Sex: Male

DRUGS (3)
  1. INLYTA [Suspect]
     Active Substance: AXITINIB
     Dosage: UNK, 1X/DAY
     Dates: start: 2020, end: 2020
  2. INLYTA [Suspect]
     Active Substance: AXITINIB
     Dosage: UNK, 2X/DAY
     Route: 048
     Dates: start: 202004, end: 2020
  3. BAVENCIO [Suspect]
     Active Substance: AVELUMAB
     Dosage: UNK
     Route: 042
     Dates: start: 202004, end: 2020

REACTIONS (3)
  - Genital rash [Unknown]
  - Dermatitis [Unknown]
  - Interstitial lung disease [Unknown]

NARRATIVE: CASE EVENT DATE: 2020
